FAERS Safety Report 7288172-5 (Version None)
Quarter: 2011Q1

REPORT INFORMATION
  Report Type: 
  Country: None (occurrence: None)
  Receive Date: 20110211
  Receipt Date: 20110207
  Transmission Date: 20110831
  Serious: No
  Sender: FDA-Public Use
  Company Number: TR-ROCHE-688935

PATIENT
  Sex: Female
  Weight: 2.4 kg

DRUGS (2)
  1. ACCUTANE [Suspect]
     Dosage: DOSAGE REGIMEN REPORTED: 2X1 AND 3X1.
     Route: 064
  2. ACCUTANE [Suspect]
     Route: 064
     Dates: end: 20091103

REACTIONS (2)
  - NORMAL NEWBORN [None]
  - NO ADVERSE EVENT [None]
